FAERS Safety Report 23062042 (Version 1)
Quarter: 2023Q4

REPORT INFORMATION
  Report Type: Spontaneous
  Country: US (occurrence: US)
  Receive Date: 20231013
  Receipt Date: 20231013
  Transmission Date: 20240110
  Serious: No
  Sender: FDA-Public Use
  Company Number: US-STRIDES ARCOLAB LIMITED-2023SP001241

PATIENT
  Sex: Female
  Weight: 147.4 kg

DRUGS (2)
  1. ACCOLATE [Suspect]
     Active Substance: ZAFIRLUKAST
     Indication: Hypersensitivity
     Dosage: UNK, BID; TABLET
     Route: 048
  2. ACCOLATE [Suspect]
     Active Substance: ZAFIRLUKAST
     Indication: Mastocytosis

REACTIONS (2)
  - Illness [Unknown]
  - Off label use [Unknown]
